FAERS Safety Report 8124984-3 (Version None)
Quarter: 2012Q1

REPORT INFORMATION
  Report Type: 
  Country: None (occurrence: None)
  Receive Date: 20120209
  Receipt Date: 20120206
  Transmission Date: 20120608
  Serious: Yes (Hospitalization)
  Sender: FDA-Public Use
  Company Number: US-PFIZER INC-2012004976

PATIENT
  Sex: Male
  Weight: 68.93 kg

DRUGS (10)
  1. COUMADIN [Suspect]
     Indication: CARDIAC DISORDER
     Dosage: 2MG DAILY
     Dates: start: 19970101
  2. LIPITOR [Suspect]
     Dosage: 40 MG, DAILY
  3. SOTALOL [Concomitant]
     Dosage: 120 MG, DAILY
  4. POTASSIUM CHLORIDE [Concomitant]
     Dosage: 20 MG, DAILY
  5. MEXILETINE [Concomitant]
     Dosage: 150 MG, DAILY
  6. CALCIUM CARBONATE [Concomitant]
     Indication: BONE DISORDER
     Dosage: 500 MG, DAILY
  7. COREG [Concomitant]
     Dosage: 6.25MG TWO TIMES A DAY
  8. ENALAPRIL [Concomitant]
     Dosage: 20MG TWO TIMES A DAY
  9. LANOXIN [Concomitant]
     Dosage: 0.25 MG, DAILY
  10. LASIX [Concomitant]
     Dosage: 20 MG, DAILY

REACTIONS (1)
  - CARDIAC DISORDER [None]
